FAERS Safety Report 6299201-X (Version None)
Quarter: 2009Q3

REPORT INFORMATION
  Report Type: 
  Country: None (occurrence: None)
  Receive Date: 20090806
  Receipt Date: 20090725
  Transmission Date: 20100115
  Serious: Yes (Other)
  Sender: FDA-Public Use
  Company Number: NZ-JNJCH-2009020572

PATIENT

DRUGS (1)
  1. PAMOL ORANGE COLOUR FREE [Suspect]
     Indication: PYREXIA
     Dosage: TEXT:UNSPECIFIED
     Route: 048
     Dates: start: 20090701, end: 20090701

REACTIONS (1)
  - HALLUCINATION [None]
